FAERS Safety Report 23331104 (Version 1)
Quarter: 2023Q4

REPORT INFORMATION
  Report Type: Spontaneous
  Country: US (occurrence: None)
  Receive Date: 20231221
  Receipt Date: 20231221
  Transmission Date: 20240110
  Serious: Yes (Life-Threatening, Hospitalization, Other)
  Sender: FDA-Public Use
  Company Number: None

PATIENT
  Age: 41 Year
  Sex: Female
  Weight: 81 kg

DRUGS (5)
  1. HERS HAIR REGROWTH TREATMENT [Suspect]
     Active Substance: MINOXIDIL
     Indication: Alopecia
     Dates: start: 20231217, end: 20231217
  2. Sertraline 150 mg [Concomitant]
  3. Alprazalam PRN .5 mg [Concomitant]
  4. Propranol 10mg PRN for anxiety [Concomitant]
  5. VITAMINS [Concomitant]
     Active Substance: VITAMINS

REACTIONS (10)
  - Vision blurred [None]
  - Vomiting [None]
  - Hypoaesthesia [None]
  - Swelling [None]
  - Syncope [None]
  - Blood pressure decreased [None]
  - Erythema [None]
  - Ocular hyperaemia [None]
  - Anal incontinence [None]
  - Muscular weakness [None]

NARRATIVE: CASE EVENT DATE: 20231217
